FAERS Safety Report 8604052-4 (Version None)
Quarter: 2012Q3

REPORT INFORMATION
  Report Type: 
  Country: None (occurrence: None)
  Receive Date: 20120820
  Receipt Date: 20120810
  Transmission Date: 20120928
  Serious: No
  Sender: FDA-Public Use
  Company Number: US-BIOGENIDEC-2012BI031079

PATIENT
  Age: 35 Year
  Sex: Female

DRUGS (1)
  1. TYSABRI [Suspect]
     Indication: MULTIPLE SCLEROSIS
     Route: 042
     Dates: start: 20120809

REACTIONS (6)
  - MUSCULAR WEAKNESS [None]
  - GAIT DISTURBANCE [None]
  - DIZZINESS [None]
  - FATIGUE [None]
  - LETHARGY [None]
  - FALL [None]
